FAERS Safety Report 7397436-6 (Version None)
Quarter: 2011Q2

REPORT INFORMATION
  Report Type: 
  Country: None (occurrence: None)
  Receive Date: 20110406
  Receipt Date: 20110402
  Transmission Date: 20111010
  Serious: No
  Sender: FDA-Public Use
  Company Number: US-PFIZER INC-2011073404

PATIENT
  Sex: Female

DRUGS (5)
  1. ACETAMINOPHEN [Suspect]
     Indication: BACK PAIN
  2. EFFEXOR [Suspect]
     Indication: DEPRESSION
     Dosage: 200 MG, 1X/DAY
     Route: 048
     Dates: end: 20110301
  3. PRISTIQ [Suspect]
     Indication: DEPRESSION
     Dosage: 50 MG, 1X/DAY
     Route: 048
     Dates: start: 20110301
  4. ACETAMINOPHEN [Suspect]
     Indication: HEADACHE
     Dosage: UNK
     Dates: start: 20110401
  5. PREVACID [Concomitant]
     Dosage: UNK
     Route: 048

REACTIONS (6)
  - HEADACHE [None]
  - BACK PAIN [None]
  - NAUSEA [None]
  - DRUG INEFFECTIVE [None]
  - ANXIETY [None]
  - DIZZINESS [None]
